FAERS Safety Report 16836618 (Version 1)
Quarter: 2019Q3

REPORT INFORMATION
  Report Type: Spontaneous
  Country: US (occurrence: US)
  Receive Date: 20190922
  Receipt Date: 20190922
  Transmission Date: 20191005
  Serious: No
  Sender: FDA-Public Use
  Company Number: US-GLAXOSMITHKLINE-US2019167105

PATIENT
  Sex: Female

DRUGS (2)
  1. BENLYSTA [Suspect]
     Active Substance: BELIMUMAB
     Indication: PRODUCT USED FOR UNKNOWN INDICATION
     Dosage: 200 MG, WE
     Route: 058
     Dates: start: 20190323
  2. BENLYSTA [Suspect]
     Active Substance: BELIMUMAB
     Dosage: 100 MG, WE
     Route: 058

REACTIONS (4)
  - Insomnia [Unknown]
  - Exposure via skin contact [Unknown]
  - Incorrect dose administered [Unknown]
  - Palpitations [Unknown]

NARRATIVE: CASE EVENT DATE: 2019
